FAERS Safety Report 13988559 (Version 1)
Quarter: 2017Q3

REPORT INFORMATION
  Report Type: Spontaneous
  Country: CA (occurrence: CA)
  Receive Date: 20170919
  Receipt Date: 20170919
  Transmission Date: 20171128
  Serious: Yes (Other)
  Sender: FDA-Public Use
  Company Number: CA-ACTELION-A-NJ2017-159599

PATIENT
  Age: 76 Year
  Sex: Female

DRUGS (6)
  1. COD LIVER OIL [Concomitant]
     Active Substance: COD LIVER OIL
  2. ULORIC [Concomitant]
     Active Substance: FEBUXOSTAT
  3. RABEPRAZOLE EC [Concomitant]
     Active Substance: RABEPRAZOLE
  4. VITAMIN B12 [Concomitant]
     Active Substance: CYANOCOBALAMIN
  5. OPSUMIT [Suspect]
     Active Substance: MACITENTAN
     Indication: PULMONARY HYPERTENSION
     Dosage: 10 MG, UNK
     Route: 048
  6. HYDROCHLOROTHIAZIDE AND LISINOPRIL [Concomitant]
     Active Substance: HYDROCHLOROTHIAZIDE\LISINOPRIL

REACTIONS (3)
  - Dyspnoea [Unknown]
  - Scleroderma [Unknown]
  - Pleural effusion [Unknown]
